FAERS Safety Report 6382692-3 (Version None)
Quarter: 2009Q3

REPORT INFORMATION
  Report Type: 
  Country: None (occurrence: None)
  Receive Date: 20090930
  Receipt Date: 20090729
  Transmission Date: 20100115
  Serious: No
  Sender: FDA-Public Use
  Company Number: ADE# 09-102

PATIENT
  Age: 58 Year
  Sex: Male

DRUGS (51)
  1. PHENYTOIN SODIUM [Suspect]
     Indication: CONVULSION
     Dosage: 400MG IN AM, BY MOUTH
     Dates: start: 20090601, end: 20090701
  2. DILANTIN [Concomitant]
  3. MIRALAX [Concomitant]
  4. DILANTIN [Concomitant]
  5. COUMADIN [Concomitant]
  6. SM STOOL SOFTENER [Concomitant]
  7. PHENOBARBITAL [Concomitant]
  8. PERIACTIN [Concomitant]
  9. COUMADIN [Concomitant]
  10. DILANTIN [Concomitant]
  11. PRILOSEC [Concomitant]
  12. TOPAMAX [Concomitant]
  13. DARVOCET-N 100 [Concomitant]
  14. NICODERM CQ [Concomitant]
  15. COUMADIN [Concomitant]
  16. PHENOBARBITAL [Concomitant]
  17. PRILOSEC [Concomitant]
  18. SM STOOL SOFTENER [Concomitant]
  19. DILANTIN [Concomitant]
  20. TOPAMAX [Concomitant]
  21. PHENOBARBITAL [Concomitant]
  22. LEVAQUIN [Concomitant]
  23. COMBIVENT INH [Concomitant]
  24. VICODIN [Concomitant]
  25. PHENOBARBITAL [Concomitant]
  26. MECLIZINE [Concomitant]
  27. COUMADIN [Concomitant]
  28. PHENOBARBITAL [Concomitant]
  29. TYLENOL (CAPLET) [Concomitant]
  30. ROBITUSSIN-DM SYRUP [Concomitant]
  31. KEFLEX [Concomitant]
  32. DEEP SEA 0.65% NOSE SPRAY [Concomitant]
  33. COMBIVENT INH [Concomitant]
  34. COUMADIN [Concomitant]
  35. DOXEPIN HCL [Concomitant]
  36. PREVACID [Concomitant]
  37. COUMADIN [Concomitant]
  38. DILANTIN [Concomitant]
  39. DOXEPIN HCL [Concomitant]
  40. PREVACID [Concomitant]
  41. TOPAMAX [Concomitant]
  42. PHENOBARBITAL [Concomitant]
  43. DOCUSATE SODIUM [Concomitant]
  44. ZITHROMAX [Concomitant]
  45. KEFLEX [Concomitant]
  46. PHENOBARBITAL [Concomitant]
  47. COLACE [Concomitant]
  48. COUMADIN [Concomitant]
  49. SILVER SULFADIAZINE 1% CRM [Concomitant]
  50. PHENOBARBITAL [Concomitant]
  51. TYLENOL (CAPLET) [Concomitant]

REACTIONS (2)
  - DRUG TOXICITY [None]
  - PRODUCT SUBSTITUTION ISSUE [None]
